FAERS Safety Report 7049310-2 (Version None)
Quarter: 2010Q4

REPORT INFORMATION
  Report Type: 
  Country: None (occurrence: None)
  Receive Date: 20101018
  Receipt Date: 20101006
  Transmission Date: 20110411
  Serious: Yes (Death)
  Sender: FDA-Public Use
  Company Number: JP-ROCHE-730494

PATIENT
  Age: 61 Year
  Sex: Female

DRUGS (3)
  1. AVASTIN [Suspect]
     Indication: RECTAL CANCER
     Dosage: DOSAGE IS UNCERTAIN.
     Route: 041
     Dates: start: 20100331, end: 20100921
  2. XELODA [Suspect]
     Indication: RECTAL CANCER
     Route: 048
     Dates: start: 20100331, end: 20100921
  3. ELPLAT [Suspect]
     Indication: RECTAL CANCER
     Dosage: DOSAGE IS UNCERTAIN
     Route: 041

REACTIONS (5)
  - DISEASE PROGRESSION [None]
  - HYPOAESTHESIA [None]
  - NEUROTOXICITY [None]
  - PALMAR-PLANTAR ERYTHRODYSAESTHESIA SYNDROME [None]
  - RECTAL CANCER [None]
